FAERS Safety Report 23929086 (Version 2)
Quarter: 2024Q3

REPORT INFORMATION
  Report Type: Spontaneous
  Country: US (occurrence: None)
  Receive Date: 20240601
  Receipt Date: 20240716
  Transmission Date: 20241016
  Serious: No
  Sender: ASTRAZENECA
  Company Number: 2024A123163

PATIENT
  Sex: Female

DRUGS (1)
  1. FASENRA [Suspect]
     Active Substance: BENRALIZUMAB
     Route: 058

REACTIONS (6)
  - Illness [Unknown]
  - Migraine [Unknown]
  - Tremor [Unknown]
  - Hypersensitivity [Unknown]
  - Visual impairment [Unknown]
  - Product dose omission issue [Unknown]
